FAERS Safety Report 7184005-6 (Version None)
Quarter: 2010Q4

REPORT INFORMATION
  Report Type: 
  Country: None (occurrence: None)
  Receive Date: 20101222
  Receipt Date: 20101216
  Transmission Date: 20110411
  Serious: Yes (Other)
  Sender: FDA-Public Use
  Company Number: US-ROCHE-749359

PATIENT
  Age: 54 Year
  Sex: Male

DRUGS (1)
  1. XELODA [Suspect]
     Indication: COLORECTAL CANCER
     Dosage: DAYS 1-14
     Route: 048
     Dates: start: 20100721, end: 20101125

REACTIONS (1)
  - MALIGNANT NEOPLASM PROGRESSION [None]
